FAERS Safety Report 10101891 (Version 2)
Quarter: 2014Q2

REPORT INFORMATION
  Report Type: Spontaneous
  Country: US (occurrence: None)
  Receive Date: 20140422
  Receipt Date: 20140520
  Transmission Date: 20141212
  Serious: Yes (Disabling, Other)
  Sender: FDA-Public Use
  Company Number: 2014SA048104

PATIENT
  Sex: Female

DRUGS (1)
  1. ICY HOT / UNKNOWN / UNKNOWN [Suspect]
     Indication: ARTHRITIS
     Route: 061

REACTIONS (7)
  - Product adhesion issue [None]
  - Application site irritation [None]
  - Gait disturbance [None]
  - Impaired driving ability [None]
  - Product quality issue [None]
  - Drug effect decreased [None]
  - Rheumatoid arthritis [None]
